FAERS Safety Report 17185787 (Version 1)
Quarter: 2019Q4

REPORT INFORMATION
  Report Type: Spontaneous
  Country: US (occurrence: US)
  Receive Date: 20191129
  Receipt Date: 20191129
  Transmission Date: 20200122
  Serious: No
  Sender: FDA-Public Use
  Company Number: None

PATIENT
  Age: 32 Year
  Sex: Female

DRUGS (1)
  1. HYDROXYPROG 250MG/ML (5ML) MDV [Suspect]
     Active Substance: HYDROXYPROGESTERONE
     Dosage: ?          OTHER FREQUENCY:OTHER;?
     Route: 030

REACTIONS (1)
  - Product prescribing issue [None]

NARRATIVE: CASE EVENT DATE: 20191129
